FAERS Safety Report 10956075 (Version 1)
Quarter: 2015Q1

REPORT INFORMATION
  Report Type: Spontaneous
  Country: US (occurrence: None)
  Receive Date: 20150226
  Receipt Date: 20150226
  Transmission Date: 20150721
  Serious: Yes (Hospitalization)
  Sender: FDA-Public Use
  Company Number: TPA2009A02196

PATIENT
  Age: 7 Decade
  Sex: Female

DRUGS (1)
  1. ACTOS [Suspect]
     Active Substance: PIOGLITAZONE HYDROCHLORIDE
     Indication: TYPE 2 DIABETES MELLITUS
     Route: 048
     Dates: start: 200806, end: 200812

REACTIONS (3)
  - Cardiac failure congestive [None]
  - Oedema peripheral [None]
  - Dyspnoea [None]

NARRATIVE: CASE EVENT DATE: 200903
